FAERS Safety Report 25986976 (Version 1)
Quarter: 2025Q4

REPORT INFORMATION
  Report Type: Spontaneous
  Country: US (occurrence: US)
  Receive Date: 20251103
  Receipt Date: 20251103
  Transmission Date: 20260117
  Serious: Yes (Death, Hospitalization, Other)
  Sender: MERCK SHARP & DOHME LLC
  Company Number: US-009507513-2343903

PATIENT
  Age: 70 Year
  Sex: Male

DRUGS (1)
  1. PEMBROLIZUMAB [Suspect]
     Active Substance: PEMBROLIZUMAB
     Indication: Malignant melanoma stage II
     Dosage: ADJUVANT THERAPY WITH A SINGLE DOSE OF PEMBROLIZUMAB 2?WEEKS BEFORE ADMISSION

REACTIONS (4)
  - Respiratory failure [Fatal]
  - Myocarditis-myositis-myasthenia gravis overlap syndrome [Fatal]
  - Immune-mediated hepatitis [Unknown]
  - Cardiac arrest [Unknown]
